FAERS Safety Report 10287573 (Version 1)
Quarter: 2014Q3

REPORT INFORMATION
  Report Type: Spontaneous
  Country: JP (occurrence: JP)
  Receive Date: 20140709
  Receipt Date: 20140709
  Transmission Date: 20150326
  Serious: Yes (Other)
  Sender: FDA-Public Use
  Company Number: JP-ACTAVIS-2014-14602

PATIENT
  Age: 61 Year
  Sex: Male

DRUGS (4)
  1. GEMCITABINE [Suspect]
     Active Substance: GEMCITABINE\GEMCITABINE HYDROCHLORIDE
     Indication: METASTASES TO LIVER
  2. ERLOTINIB [Suspect]
     Active Substance: ERLOTINIB
     Indication: METASTASES TO LIVER
  3. GEMCITABINE [Suspect]
     Active Substance: GEMCITABINE\GEMCITABINE HYDROCHLORIDE
     Indication: PANCREATIC CARCINOMA RECURRENT
     Dosage: UNK
     Route: 065
  4. ERLOTINIB [Suspect]
     Active Substance: ERLOTINIB
     Indication: PANCREATIC CARCINOMA RECURRENT
     Dosage: UNK
     Route: 048

REACTIONS (1)
  - Thrombocytosis [Recovered/Resolved]
